FAERS Safety Report 16949388 (Version 2)
Quarter: 2019Q4

REPORT INFORMATION
  Report Type: Spontaneous
  Country: US (occurrence: US)
  Receive Date: 20191023
  Receipt Date: 20191227
  Transmission Date: 20200122
  Serious: No
  Sender: FDA-Public Use
  Company Number: US-GLAXOSMITHKLINE-US2019AMR187825

PATIENT
  Age: 72 Year
  Sex: Female

DRUGS (1)
  1. NUCALA [Suspect]
     Active Substance: MEPOLIZUMAB
     Indication: ASTHMA
     Dosage: 100 MG, CYC (EVERY 4 WEEK)
     Route: 058
     Dates: start: 20190925

REACTIONS (11)
  - Headache [Unknown]
  - Fatigue [Unknown]
  - Ear discomfort [Unknown]
  - Dyspnoea [Unknown]
  - Dizziness [Unknown]
  - Throat tightness [Unknown]
  - Rash [Unknown]
  - Lacrimation increased [Unknown]
  - Parosmia [Unknown]
  - Drug ineffective [Unknown]
  - Ageusia [Unknown]

NARRATIVE: CASE EVENT DATE: 20191002
